FAERS Safety Report 14330058 (Version 7)
Quarter: 2018Q2

REPORT INFORMATION
  Report Type: Report from Study
  Country: FR (occurrence: FR)
  Receive Date: 20171227
  Receipt Date: 20180514
  Transmission Date: 20180711
  Serious: Yes (Hospitalization, Other)
  Sender: FDA-Public Use
  Company Number: FR-PFIZER INC-2017544242

PATIENT
  Age: 13 Year
  Sex: Male

DRUGS (21)
  1. VINCRISTINE SULFATE. [Suspect]
     Active Substance: VINCRISTINE SULFATE
     Indication: ACUTE LYMPHOCYTIC LEUKAEMIA
     Dosage: 1.1 MG, 1X/DAY
     Route: 042
     Dates: start: 20170117, end: 20170207
  2. HYDROCORTISONE. [Suspect]
     Active Substance: HYDROCORTISONE
     Dosage: 15 MG, 1X/DAY
     Route: 037
     Dates: start: 20170920
  3. METHOTREXATE. [Suspect]
     Active Substance: METHOTREXATE
     Dosage: 15 MG, 1X/DAY
     Route: 037
     Dates: start: 20170920, end: 20171002
  4. ONCASPAR [Suspect]
     Active Substance: PEGASPARGASE
     Indication: ACUTE LYMPHOCYTIC LEUKAEMIA
     Dosage: 1800 IU, 1X/DAY
     Route: 042
     Dates: start: 20170121
  5. CYTARABINE. [Suspect]
     Active Substance: CYTARABINE
     Dosage: 30 MG, 1X/DAY
     Route: 037
     Dates: start: 20170920
  6. DAUNORUBICIN [Suspect]
     Active Substance: DAUNORUBICIN
     Indication: ACUTE LYMPHOCYTIC LEUKAEMIA
     Dosage: 22 MG, UNK
     Route: 042
     Dates: start: 20170117, end: 20170207
  7. DAUNORUBICIN [Suspect]
     Active Substance: DAUNORUBICIN
     Dosage: 52.5 MG, 1X/DAY
     Route: 042
     Dates: start: 20171006
  8. PREDNISONE. [Suspect]
     Active Substance: PREDNISONE
     Dosage: 110 MG, 1X/DAY
     Route: 048
     Dates: start: 20170915
  9. HYDROCORTISONE. [Suspect]
     Active Substance: HYDROCORTISONE
     Indication: ACUTE LYMPHOCYTIC LEUKAEMIA
     Dosage: 15 MG, 1X/DAY
     Route: 037
     Dates: start: 20170122, end: 20170202
  10. CYTARABINE. [Suspect]
     Active Substance: CYTARABINE
     Indication: ACUTE LYMPHOCYTIC LEUKAEMIA
     Dosage: 30 MG, 1X/DAY
     Route: 037
     Dates: start: 20170122, end: 20170202
  11. DAUNORUBICIN [Suspect]
     Active Substance: DAUNORUBICIN
     Dosage: 52.5 MG, 1X/DAY
     Route: 042
     Dates: start: 20170915, end: 20171006
  12. ONCASPAR [Suspect]
     Active Substance: PEGASPARGASE
     Dosage: 2175 IU, 1X/DAY
     Route: 042
     Dates: start: 20171003
  13. PREDNISONE. [Suspect]
     Active Substance: PREDNISONE
     Indication: ACUTE LYMPHOCYTIC LEUKAEMIA
     Dosage: 45 MG, 1X/DAY
     Route: 048
     Dates: start: 20170117, end: 20170213
  14. METHOTREXATE. [Suspect]
     Active Substance: METHOTREXATE
     Dosage: 15 MG, 1X/DAY
     Route: 037
     Dates: start: 20171002
  15. ONCASPAR [Suspect]
     Active Substance: PEGASPARGASE
     Dosage: 2175 IU, 1X/DAY
     Route: 042
     Dates: start: 20170919
  16. METHOTREXATE. [Suspect]
     Active Substance: METHOTREXATE
     Indication: ACUTE LYMPHOCYTIC LEUKAEMIA
     Dosage: 12 MG, UNK
     Route: 037
     Dates: start: 20170110, end: 20170202
  17. CYTARABINE. [Suspect]
     Active Substance: CYTARABINE
     Dosage: 30 MG, 1X/DAY
     Route: 037
     Dates: start: 20171002
  18. VINCRISTINE SULFATE. [Suspect]
     Active Substance: VINCRISTINE SULFATE
     Dosage: 2 MG, 1X/DAY
     Route: 042
     Dates: start: 20170915
  19. VINCRISTINE SULFATE. [Suspect]
     Active Substance: VINCRISTINE SULFATE
     Dosage: 2 MG, 1X/DAY
     Route: 042
     Dates: start: 20171006
  20. HYDROCORTISONE. [Suspect]
     Active Substance: HYDROCORTISONE
     Dosage: 15 MG, 1X/DAY
     Route: 037
     Dates: start: 20171002
  21. PREDNISONE. [Suspect]
     Active Substance: PREDNISONE
     Dosage: 110 MG, 1X/DAY
     Route: 048
     Dates: start: 20171006

REACTIONS (2)
  - Hypofibrinogenaemia [Recovered/Resolved]
  - Hypofibrinogenaemia [Recovered/Resolved]

NARRATIVE: CASE EVENT DATE: 20170202
